FAERS Safety Report 9982453 (Version 1)
Quarter: 2014Q1

REPORT INFORMATION
  Report Type: Report from Study
  Country: US (occurrence: US)
  Receive Date: 20140307
  Receipt Date: 20140307
  Transmission Date: 20141002
  Serious: No
  Sender: FDA-Public Use
  Company Number: US-ABBVIE-13P-163-1178510-00

PATIENT
  Age: 38 Year
  Sex: Female
  Weight: 72.64 kg

DRUGS (4)
  1. HUMIRA [Suspect]
     Indication: COLITIS ULCERATIVE
     Dates: start: 20131022
  2. URSODIOL [Concomitant]
     Indication: BILIARY CIRRHOSIS PRIMARY
  3. EXCEDRIN [Concomitant]
     Indication: MIGRAINE
  4. BENADRYL [Concomitant]
     Indication: ALLERGIC SINUSITIS

REACTIONS (1)
  - Drug ineffective [Not Recovered/Not Resolved]
